FAERS Safety Report 9568854 (Version 2)
Quarter: 2013Q3

REPORT INFORMATION
  Report Type: Spontaneous
  Country: US (occurrence: US)
  Receive Date: 20130930
  Receipt Date: 20130930
  Transmission Date: 20140515
  Serious: No
  Sender: FDA-Public Use
  Company Number: US-AMGEN-USASP2013045929

PATIENT
  Age: 68 Year
  Sex: Male

DRUGS (2)
  1. ENBREL [Suspect]
     Indication: PSORIASIS
     Dosage: 50 MG, BIW
     Route: 058
     Dates: start: 20130424, end: 20130716
  2. PAXIL                              /00830802/ [Concomitant]
     Dosage: 40 MG, UNK

REACTIONS (2)
  - Condition aggravated [Unknown]
  - Psoriasis [Not Recovered/Not Resolved]
